FAERS Safety Report 8056178-4 (Version None)
Quarter: 2012Q1

REPORT INFORMATION
  Report Type: 
  Country: None (occurrence: None)
  Receive Date: 20120119
  Receipt Date: 20120116
  Transmission Date: 20120608
  Serious: No
  Sender: FDA-Public Use
  Company Number: US-BAYER-2012-005632

PATIENT
  Sex: Male
  Weight: 93 kg

DRUGS (6)
  1. ACETYLSALICYLIC ACID SRT [Concomitant]
     Dosage: ONCE DAILY
     Route: 048
  2. GOUT MEDICATON [Concomitant]
  3. ALEVE (CAPLET) [Suspect]
     Indication: ANALGESIC THERAPY
     Dosage: 2, ONCE DAILY
     Dates: start: 20120109, end: 20120114
  4. ANTIHYPERTENSIVES [Concomitant]
  5. CORTISONE ACETATE [Concomitant]
  6. CHOLESTEROL- AND TRIGLYCERIDE REDUCERS [Concomitant]

REACTIONS (2)
  - FLATULENCE [None]
  - CONSTIPATION [None]
